FAERS Safety Report 19083639 (Version 2)
Quarter: 2021Q2

REPORT INFORMATION
  Report Type: Spontaneous
  Country: US (occurrence: US)
  Receive Date: 20210401
  Receipt Date: 20210504
  Transmission Date: 20210717
  Serious: No
  Sender: FDA-Public Use
  Company Number: US-TAKEDA-2021TUS021029

PATIENT
  Sex: Female

DRUGS (3)
  1. MOTEGRITY [Suspect]
     Active Substance: PRUCALOPRIDE SUCCINATE
     Indication: PRODUCT USED FOR UNKNOWN INDICATION
     Dosage: UNK, QD TAKEN AT NIGHT
     Route: 065
  2. NEOMYCIN. [Concomitant]
     Active Substance: NEOMYCIN
     Indication: GASTROINTESTINAL BACTERIAL OVERGROWTH
     Dosage: UNK, TID OR BID
     Route: 065
  3. XIFAXAN [Concomitant]
     Active Substance: RIFAXIMIN
     Indication: GASTROINTESTINAL BACTERIAL OVERGROWTH

REACTIONS (5)
  - Nausea [Not Recovered/Not Resolved]
  - Inappropriate schedule of product administration [Unknown]
  - Feeling abnormal [Not Recovered/Not Resolved]
  - Diarrhoea [Unknown]
  - Gastrointestinal bacterial overgrowth [Not Recovered/Not Resolved]

NARRATIVE: CASE EVENT DATE: 20210320
